FAERS Safety Report 22180900 (Version 2)
Quarter: 2023Q2

REPORT INFORMATION
  Report Type: Report from Study
  Country: US (occurrence: US)
  Receive Date: 20230406
  Receipt Date: 20230412
  Transmission Date: 20230722
  Serious: Yes (Other)
  Sender: FDA-Public Use
  Company Number: US-ABBVIE-4715336

PATIENT
  Sex: Female

DRUGS (5)
  1. SYNTHROID [Suspect]
     Active Substance: LEVOTHYROXINE SODIUM
     Indication: Product used for unknown indication
     Route: 048
  2. TRICOR [Suspect]
     Active Substance: FENOFIBRATE
     Indication: Product used for unknown indication
     Route: 065
  3. VANCOMYCIN [Suspect]
     Active Substance: VANCOMYCIN
     Indication: Product used for unknown indication
     Route: 065
  4. ARMOUR THYROID [Concomitant]
     Active Substance: THYROID, PORCINE
     Indication: Product used for unknown indication
     Dates: start: 2011
  5. LEVOTHYROXINE [Suspect]
     Active Substance: LEVOTHYROXINE
     Indication: Product used for unknown indication
     Route: 065

REACTIONS (17)
  - Thyroidectomy [Unknown]
  - Goitre [Unknown]
  - Sinus congestion [Unknown]
  - Lethargy [Unknown]
  - Hypertension [Unknown]
  - Erythema [Unknown]
  - Swollen tongue [Unknown]
  - Loss of consciousness [Unknown]
  - Food allergy [Unknown]
  - Drug hypersensitivity [Unknown]
  - Allergy to chemicals [Unknown]
  - Alopecia [Unknown]
  - Tongue erythema [Unknown]
  - Heart rate increased [Unknown]
  - Nausea [Unknown]
  - Urticaria [Unknown]
  - Pyrexia [Unknown]

NARRATIVE: CASE EVENT DATE: 20110101
